FAERS Safety Report 21289481 (Version 1)
Quarter: 2022Q3

REPORT INFORMATION
  Report Type: Spontaneous
  Country: US (occurrence: US)
  Receive Date: 20220902
  Receipt Date: 20220902
  Transmission Date: 20221027
  Serious: Yes (Other)
  Sender: FDA-Public Use
  Company Number: US-NOVARTISTESTPH-NVSC2022US197869

PATIENT
  Age: 40 Year
  Sex: Female

DRUGS (1)
  1. GLEEVEC [Suspect]
     Active Substance: IMATINIB MESYLATE
     Indication: Chronic myeloid leukaemia
     Dosage: UNK UNK, QD
     Route: 048

REACTIONS (3)
  - Nausea [Not Recovered/Not Resolved]
  - Bone pain [Not Recovered/Not Resolved]
  - Diarrhoea [Not Recovered/Not Resolved]
